FAERS Safety Report 8561084-2 (Version None)
Quarter: 2012Q3

REPORT INFORMATION
  Report Type: 
  Country: None (occurrence: None)
  Receive Date: 20120802
  Receipt Date: 20120604
  Transmission Date: 20120928
  Serious: No
  Sender: FDA-Public Use
  Company Number: US-BRISTOL-MYERS SQUIBB COMPANY-16481574

PATIENT
  Age: 48 Year
  Sex: Male

DRUGS (9)
  1. NORVIR [Concomitant]
  2. VIAGRA [Concomitant]
  3. FLUTICASONE FUROATE [Concomitant]
     Dosage: NASAL SPRAY.
     Route: 045
  4. TRUVADA [Concomitant]
  5. ISENTRESS [Concomitant]
  6. VIREAD [Concomitant]
  7. VIRAMUNE [Concomitant]
     Dosage: VIRAMUNE XR
  8. BACTRIM [Concomitant]
  9. REYATAZ [Suspect]
     Dosage: MARCH HAD TWICE DAILY
     Dates: start: 20120201

REACTIONS (1)
  - INCORRECT DOSE ADMINISTERED [None]
